FAERS Safety Report 9660712 (Version 3)
Quarter: 2013Q4

REPORT INFORMATION
  Report Type: Report from Study
  Country: US (occurrence: US)
  Receive Date: 20131031
  Receipt Date: 20131104
  Transmission Date: 20140711
  Serious: Yes (Other)
  Sender: FDA-Public Use
  Company Number: US-SA-MIPO-1000439

PATIENT
  Age: 66 Year
  Sex: Male
  Weight: 79.3 kg

DRUGS (18)
  1. MIPOMERSEN [Suspect]
     Indication: TYPE IIA HYPERLIPIDAEMIA
     Dosage: 200 MG, QW
     Route: 059
     Dates: start: 20091207, end: 20130717
  2. ATORVASTATIN [Concomitant]
     Indication: BLOOD CHOLESTEROL INCREASED
     Dosage: 80 MG, QD
     Route: 048
     Dates: start: 20100905
  3. ATORVASTATIN [Concomitant]
     Indication: TYPE IIA HYPERLIPIDAEMIA
     Dosage: 80 MG, QD
     Route: 048
     Dates: start: 20100905
  4. NICOTINIC ACID [Concomitant]
     Indication: TYPE IIA HYPERLIPIDAEMIA
     Dosage: 1000 MG, QD
     Route: 048
     Dates: start: 20100905
  5. ACETYLSALICYLIC ACID [Concomitant]
     Indication: CARDIOVASCULAR EVENT PROPHYLAXIS
     Dosage: 81 MG, QD
     Route: 048
     Dates: start: 20100905, end: 20130416
  6. ACETYLSALICYLIC ACID [Concomitant]
     Indication: CARDIOVASCULAR EVENT PROPHYLAXIS
     Dosage: 81 MG, QD
     Route: 048
     Dates: start: 20130501
  7. VITAMIN C [Concomitant]
     Indication: NUTRITIONAL SUPPLEMENTATION
     Dosage: 1000 MG, QD
     Route: 048
     Dates: start: 20100905
  8. VITAMIN D [Concomitant]
     Indication: NUTRITIONAL SUPPLEMENTATION
     Dosage: 2000 IU, QD
     Route: 048
     Dates: start: 20100905
  9. FOLIC ACID [Concomitant]
     Indication: NUTRITIONAL SUPPLEMENTATION
     Dosage: 400 MCG, QD
     Route: 048
     Dates: start: 20100905
  10. CALCIUM [Concomitant]
     Indication: NUTRITIONAL SUPPLEMENTATION
     Dosage: 500 MG, QD
     Route: 048
     Dates: start: 20100905
  11. MUCINEX [Concomitant]
     Indication: RHINITIS ALLERGIC
     Dosage: 1 PILL, BID DOSE:1 OTHER
     Route: 048
     Dates: start: 20111201
  12. ADVIL [Concomitant]
     Indication: RHINITIS ALLERGIC
     Dosage: 1 PILL, PRN DOSE:1 OTHER
     Route: 048
     Dates: start: 20111201
  13. OMEGA-3 MARINE TRIGLYCERIDES [Concomitant]
     Indication: TYPE IIA HYPERLIPIDAEMIA
     Dosage: 2 G, QD
     Route: 048
     Dates: start: 20101208, end: 20130416
  14. OMEGA-3 MARINE TRIGLYCERIDES [Concomitant]
     Indication: BLOOD CHOLESTEROL INCREASED
     Dosage: 2 G, QD
     Route: 048
     Dates: start: 20101208, end: 20130416
  15. OMEGA-3 MARINE TRIGLYCERIDES [Concomitant]
     Indication: CONSTIPATION PROPHYLAXIS
     Dosage: 2 G, QD
     Route: 048
     Dates: start: 20101208, end: 20130416
  16. OMEGA-3 MARINE TRIGLYCERIDES [Concomitant]
     Indication: TYPE IIA HYPERLIPIDAEMIA
     Dosage: 2 G, QD
     Route: 048
     Dates: start: 20130501
  17. OMEGA-3 MARINE TRIGLYCERIDES [Concomitant]
     Indication: BLOOD CHOLESTEROL INCREASED
     Dosage: 2 G, QD
     Route: 048
     Dates: start: 20130501
  18. OMEGA-3 MARINE TRIGLYCERIDES [Concomitant]
     Indication: CONSTIPATION PROPHYLAXIS
     Dosage: 2 G, QD
     Route: 048
     Dates: start: 20130501

REACTIONS (1)
  - Squamous cell carcinoma [Recovered/Resolved]
